FAERS Safety Report 23319668 (Version 2)
Quarter: 2023Q4

REPORT INFORMATION
  Report Type: Other
  Country: HR (occurrence: None)
  Receive Date: 20231220
  Receipt Date: 20231227
  Transmission Date: 20240110
  Serious: Yes (Other)
  Sender: FDA-Public Use
  Company Number: HR-ROCHE-3474419

PATIENT
  Age: 74 Year
  Sex: Female

DRUGS (1)
  1. OBINUTUZUMAB [Suspect]
     Active Substance: OBINUTUZUMAB
     Indication: Follicular lymphoma
     Route: 065

REACTIONS (2)
  - COVID-19 [Recovering/Resolving]
  - Pneumonia [Recovering/Resolving]
